FAERS Safety Report 7758900-0 (Version None)
Quarter: 2011Q3

REPORT INFORMATION
  Report Type: 
  Country: None (occurrence: None)
  Receive Date: 20110919
  Receipt Date: 20110916
  Transmission Date: 20111222
  Serious: Yes (Hospitalization)
  Sender: FDA-Public Use
  Company Number: JP-BRACCO-001651

PATIENT
  Age: 62 Year
  Sex: Male

DRUGS (7)
  1. OMEPRAZOLE [Concomitant]
  2. AMARYL [Concomitant]
  3. BASEN [Concomitant]
  4. IOPAMIDOL [Suspect]
     Indication: DIABETES MELLITUS
     Dosage: ADDMINISTERED AT 2 ML/SEC INTO BRACHIAL VEIN
     Route: 042
     Dates: start: 20090121, end: 20090121
  5. URSO 250 [Concomitant]
  6. IOPAMIDOL [Suspect]
     Indication: COMPUTERISED TOMOGRAM ABDOMEN
     Dosage: ADDMINISTERED AT 2 ML/SEC INTO BRACHIAL VEIN
     Route: 042
     Dates: start: 20090121, end: 20090121
  7. ACTOS [Concomitant]

REACTIONS (2)
  - ACUTE PULMONARY OEDEMA [None]
  - ACUTE RESPIRATORY DISTRESS SYNDROME [None]
